FAERS Safety Report 21443655 (Version 1)
Quarter: 2022Q4

REPORT INFORMATION
  Report Type: Spontaneous
  Country: US (occurrence: US)
  Receive Date: 20221012
  Receipt Date: 20221012
  Transmission Date: 20230113
  Serious: No
  Sender: FDA-Public Use
  Company Number: US-TEVA-2022-US-2078337

PATIENT
  Age: 64 Year
  Sex: Male

DRUGS (1)
  1. ALBUTEROL SULFATE [Suspect]
     Active Substance: ALBUTEROL SULFATE
     Indication: Product used for unknown indication
     Dosage: INHALATION - AEROSOL, 90 MCG
     Route: 065

REACTIONS (3)
  - Asthma [Unknown]
  - Device malfunction [Unknown]
  - Device defective [Unknown]

NARRATIVE: CASE EVENT DATE: 20220918
